FAERS Safety Report 7490310-6 (Version None)
Quarter: 2011Q2

REPORT INFORMATION
  Report Type: 
  Country: None (occurrence: None)
  Receive Date: 20110519
  Receipt Date: 20110228
  Transmission Date: 20111010
  Serious: Yes (Other)
  Sender: FDA-Public Use
  Company Number: US-BRISTOL-MYERS SQUIBB COMPANY-15575517

PATIENT
  Age: 5 Decade
  Sex: Male

DRUGS (1)
  1. BARACLUDE [Suspect]

REACTIONS (1)
  - DRUG TOLERANCE [None]
